FAERS Safety Report 23686716 (Version 1)
Quarter: 2024Q1

REPORT INFORMATION
  Report Type: Spontaneous
  Country: US (occurrence: US)
  Receive Date: 20240329
  Receipt Date: 20240329
  Transmission Date: 20240409
  Serious: Yes (Hospitalization)
  Sender: FDA-Public Use
  Company Number: US-MYLANLABS-2024M1028604

PATIENT
  Sex: Male

DRUGS (10)
  1. PHENYTOIN [Suspect]
     Active Substance: PHENYTOIN
     Indication: Temporal lobe epilepsy
     Dosage: UNK
     Route: 065
  2. CLONAZEPAM [Suspect]
     Active Substance: CLONAZEPAM
     Indication: Temporal lobe epilepsy
     Dosage: UNK
     Route: 065
  3. GABAPENTIN [Suspect]
     Active Substance: GABAPENTIN
     Indication: Temporal lobe epilepsy
     Dosage: UNK
     Route: 065
  4. VALPROIC ACID [Suspect]
     Active Substance: VALPROIC ACID
     Indication: Temporal lobe epilepsy
     Dosage: UNK
     Route: 065
  5. LAMOTRIGINE [Suspect]
     Active Substance: LAMOTRIGINE
     Indication: Temporal lobe epilepsy
     Dosage: UNK
     Route: 065
  6. TOPIRAMATE [Suspect]
     Active Substance: TOPIRAMATE
     Indication: Temporal lobe epilepsy
     Dosage: UNK
     Route: 065
  7. PRIMIDONE [Suspect]
     Active Substance: PRIMIDONE
     Indication: Temporal lobe epilepsy
     Dosage: UNK
     Route: 065
  8. PHENOBARBITAL [Suspect]
     Active Substance: PHENOBARBITAL
     Indication: Temporal lobe epilepsy
     Dosage: UNK
     Route: 065
  9. CARBAMAZEPINE [Suspect]
     Active Substance: CARBAMAZEPINE
     Indication: Temporal lobe epilepsy
     Dosage: UNK
     Route: 065
  10. LACOSAMIDE [Suspect]
     Active Substance: LACOSAMIDE
     Indication: Temporal lobe epilepsy
     Dosage: UNK
     Route: 065

REACTIONS (1)
  - Drug ineffective [Unknown]
